FAERS Safety Report 19278961 (Version 1)
Quarter: 2021Q2

REPORT INFORMATION
  Report Type: Spontaneous
  Country: US (occurrence: US)
  Receive Date: 20210520
  Receipt Date: 20210520
  Transmission Date: 20210717
  Serious: No
  Sender: FDA-Public Use
  Company Number: US-AUROBINDO-AUR-APL-2021-011588

PATIENT
  Age: 45 Year
  Sex: Female
  Weight: 61.23 kg

DRUGS (5)
  1. PROGESTERONE CAPSULES 100 MG [Suspect]
     Active Substance: PROGESTERONE
     Indication: MENOPAUSE
     Dosage: 1 DOSAGE FORM, DAILY (01 PILL PER DAY BEFORE BED TIME)
     Route: 065
     Dates: start: 202012
  2. PROGESTERONE CAPSULES 200 MG [Suspect]
     Active Substance: PROGESTERONE
     Indication: MENOPAUSE
     Dosage: 1 DOSAGE FORM, DAILY (01 PILL PER DAY BEFORE BED TIME)
     Route: 065
     Dates: start: 202102
  3. PROGESTERONE CAPSULES 200 MG [Suspect]
     Active Substance: PROGESTERONE
     Indication: HORMONE REPLACEMENT THERAPY
  4. PROGESTERONE CAPSULES 100 MG [Suspect]
     Active Substance: PROGESTERONE
     Indication: HORMONE REPLACEMENT THERAPY
     Dosage: 2 DOSAGE FORM, DAILY (02 100MG PILLS)
     Route: 065
     Dates: start: 20210309
  5. ESTRADIOL. [Concomitant]
     Active Substance: ESTRADIOL
     Indication: PRODUCT USED FOR UNKNOWN INDICATION
     Dosage: UNK
     Route: 065

REACTIONS (2)
  - Somnolence [Not Recovered/Not Resolved]
  - Drug ineffective [Unknown]

NARRATIVE: CASE EVENT DATE: 202102
